FAERS Safety Report 25969085 (Version 1)
Quarter: 2025Q4

REPORT INFORMATION
  Report Type: Spontaneous
  Country: US (occurrence: None)
  Receive Date: 20251027
  Receipt Date: 20251027
  Transmission Date: 20260118
  Serious: Yes (Hospitalization)
  Sender: FDA-CTU
  Company Number: None

PATIENT
  Age: 63 Year
  Sex: Male
  Weight: 112.05 kg

DRUGS (1)
  1. WEGOVY [Suspect]
     Active Substance: SEMAGLUTIDE
     Indication: Blood cholesterol increased
     Dosage: OTHER FREQUENCY : WEEKLY;?
     Route: 030
     Dates: start: 20251001, end: 20251015

REACTIONS (5)
  - Diarrhoea [None]
  - Influenza [None]
  - Dialysis [None]
  - Renal failure [None]
  - Pancreatitis [None]

NARRATIVE: CASE EVENT DATE: 20251015
